FAERS Safety Report 5741676-6 (Version None)
Quarter: 2008Q2

REPORT INFORMATION
  Report Type: 
  Country: None (occurrence: None)
  Receive Date: 20080519
  Receipt Date: 20070124
  Transmission Date: 20081010
  Serious: No
  Sender: FDA-Public Use
  Company Number: US-BAYER-US-2006-040946

PATIENT
  Age: 40 Year
  Sex: Female
  Weight: 142 kg

DRUGS (3)
  1. ULTRAVIST 300 [Suspect]
     Indication: COMPUTERISED TOMOGRAM ABDOMEN
     Dosage: UNIT DOSE: 100 ML
     Route: 042
     Dates: start: 20061228, end: 20061228
  2. PREDNISONE [Concomitant]
     Indication: PREMEDICATION
     Route: 048
     Dates: start: 20061227, end: 20061228
  3. BENADRYL ^PFIZER WARNER-LAMBERT^ [Concomitant]
     Indication: PREMEDICATION
     Route: 048
     Dates: start: 20061227, end: 20061228

REACTIONS (3)
  - EYE PRURITUS [None]
  - ORAL PRURITUS [None]
  - THROAT IRRITATION [None]
